FAERS Safety Report 16900030 (Version 2)
Quarter: 2019Q4

REPORT INFORMATION
  Report Type: Spontaneous
  Country: GB (occurrence: GB)
  Receive Date: 20191009
  Receipt Date: 20191014
  Transmission Date: 20200122
  Serious: Yes (Other)
  Sender: FDA-Public Use
  Company Number: GB-PFIZER INC-2019432627

PATIENT
  Age: 63 Year
  Sex: Male
  Weight: 140 kg

DRUGS (6)
  1. ATORVASTATIN [Concomitant]
     Active Substance: ATORVASTATIN
     Dosage: 1 DF, QD
     Route: 065
     Dates: start: 20180326
  2. COCODAMOL [Concomitant]
     Active Substance: ACETAMINOPHEN\CODEINE PHOSPHATE
     Dosage: 1 DF, UNK
     Route: 065
     Dates: start: 20180326
  3. RAMIPRIL. [Suspect]
     Active Substance: RAMIPRIL
     Dosage: 5 MG, UNK
     Route: 065
     Dates: start: 20190912
  4. TOLTERODINE TARTRATE. [Concomitant]
     Active Substance: TOLTERODINE TARTRATE
     Dosage: 1 DF, QD
     Route: 065
     Dates: start: 20180326
  5. CANDESARTAN. [Concomitant]
     Active Substance: CANDESARTAN
     Dosage: 1 DF, QD
     Route: 065
     Dates: start: 20180326
  6. LEVOTHYROXINE. [Concomitant]
     Active Substance: LEVOTHYROXINE
     Dosage: 1 DF, QD
     Route: 065
     Dates: start: 20180326

REACTIONS (1)
  - Pain in extremity [Not Recovered/Not Resolved]

NARRATIVE: CASE EVENT DATE: 20190912
